FAERS Safety Report 20465358 (Version 2)
Quarter: 2022Q1

REPORT INFORMATION
  Report Type: Spontaneous
  Country: US (occurrence: US)
  Receive Date: 20220212
  Receipt Date: 20220309
  Transmission Date: 20220423
  Serious: Yes (Other)
  Sender: FDA-Public Use
  Company Number: US-GLAXOSMITHKLINE-US2022020483

PATIENT
  Age: 64 Year
  Sex: Female

DRUGS (2)
  1. TRELEGY ELLIPTA [Suspect]
     Active Substance: FLUTICASONE FUROATE\UMECLIDINIUM BROMIDE\VILANTEROL TRIFENATATE
     Indication: Chronic obstructive pulmonary disease
     Dosage: UNK
     Route: 055
     Dates: start: 20170103
  2. SULFACETAMIDE SODIUM [Suspect]
     Active Substance: SULFACETAMIDE SODIUM
     Indication: Product used for unknown indication
     Dosage: UNK

REACTIONS (8)
  - Pneumonia [Recovered/Resolved]
  - Oral mucosal eruption [Not Recovered/Not Resolved]
  - Rash [Unknown]
  - Oral pain [Unknown]
  - Stomatitis [Unknown]
  - Cough [Recovered/Resolved]
  - Coating in mouth [Unknown]
  - Wrong technique in device usage process [Unknown]

NARRATIVE: CASE EVENT DATE: 20220121
